FAERS Safety Report 4904121-6 (Version None)
Quarter: 2006Q1

REPORT INFORMATION
  Report Type: 
  Country: None (occurrence: None)
  Receive Date: 20060208
  Receipt Date: 20050111
  Transmission Date: 20060701
  Serious: No
  Sender: FDA-Public Use
  Company Number: US-GLAXOSMITHKLINE-A0543584A

PATIENT
  Sex: Male
  Weight: 104.1 kg

DRUGS (5)
  1. PAXIL [Suspect]
     Indication: DEPRESSION
     Dosage: 20MG PER DAY
     Route: 048
     Dates: start: 19960509
  2. SYNTHROID [Concomitant]
  3. RELAFEN [Concomitant]
  4. AMOXICILLIN [Concomitant]
  5. AMARYL [Concomitant]

REACTIONS (1)
  - DRUG WITHDRAWAL SYNDROME [None]
